FAERS Safety Report 24167139 (Version 1)
Quarter: 2024Q3

REPORT INFORMATION
  Report Type: Spontaneous
  Country: JP (occurrence: JP)
  Receive Date: 20240802
  Receipt Date: 20240802
  Transmission Date: 20241017
  Serious: Yes (Other)
  Sender: EAGLE
  Company Number: JP-EAGLE PHARMACEUTICALS, INC.-JP-2024EAG000187

PATIENT
  Sex: Female
  Weight: 63 kg

DRUGS (7)
  1. REMIMAZOLAM [Suspect]
     Active Substance: REMIMAZOLAM
     Indication: Induction and maintenance of anaesthesia
     Dosage: 0.11 MG/KG, SINGLE
     Route: 042
     Dates: start: 20240612, end: 20240612
  2. REMIMAZOLAM [Suspect]
     Active Substance: REMIMAZOLAM
     Dosage: 0.3 MG/KG/H
     Route: 042
     Dates: start: 20240612, end: 20240612
  3. REMIMAZOLAM [Suspect]
     Active Substance: REMIMAZOLAM
     Dosage: 0.25 MG/KG/H
     Route: 042
     Dates: start: 20240612, end: 20240612
  4. REMIMAZOLAM [Suspect]
     Active Substance: REMIMAZOLAM
     Dosage: 0.2 MG/KG/H
     Route: 042
     Dates: start: 20240612, end: 20240612
  5. ROCURONIUM BROMIDE [Suspect]
     Active Substance: ROCURONIUM BROMIDE
     Indication: Product used for unknown indication
     Dosage: UNK
     Route: 042
     Dates: start: 20240612, end: 20240612
  6. FENTANYL CITRATE [Suspect]
     Active Substance: FENTANYL CITRATE
     Indication: Product used for unknown indication
     Dosage: UNK
     Route: 042
     Dates: start: 20240612, end: 20240612
  7. REMIFENTANIL HYDROCHLORIDE [Suspect]
     Active Substance: REMIFENTANIL HYDROCHLORIDE
     Indication: Product used for unknown indication
     Dosage: UNK
     Route: 042
     Dates: start: 20240612, end: 20240612

REACTIONS (4)
  - Delayed recovery from anaesthesia [Recovered/Resolved]
  - Respiratory arrest [Recovered/Resolved]
  - Vomiting [Unknown]
  - Hypopnoea [Unknown]

NARRATIVE: CASE EVENT DATE: 20240612
